FAERS Safety Report 15620709 (Version 3)
Quarter: 2018Q4

REPORT INFORMATION
  Report Type: Spontaneous
  Country: US (occurrence: US)
  Receive Date: 20181115
  Receipt Date: 20181204
  Transmission Date: 20190205
  Serious: Yes (Other)
  Sender: FDA-Public Use
  Company Number: US-UNITED THERAPEUTICS-UNT-2018-018766

PATIENT
  Age: 67 Year
  Sex: Female
  Weight: 49.43 kg

DRUGS (4)
  1. TYVASO [Suspect]
     Active Substance: TREPROSTINIL
     Indication: PULMONARY ARTERIAL HYPERTENSION
     Dosage: 18- 54 MICROGRAMS, QID
     Dates: start: 20181109, end: 201811
  2. AMLODIPINE [Concomitant]
     Active Substance: AMLODIPINE BESYLATE
     Indication: PRODUCT USED FOR UNKNOWN INDICATION
     Route: 065
  3. ADEMPAS [Suspect]
     Active Substance: RIOCIGUAT
     Indication: PRODUCT USED FOR UNKNOWN INDICATION
     Route: 065
  4. ELIQUIS [Concomitant]
     Active Substance: APIXABAN
     Indication: PRODUCT USED FOR UNKNOWN INDICATION
     Route: 065

REACTIONS (7)
  - Atrial fibrillation [Unknown]
  - Orthostatic hypotension [Unknown]
  - Chest pain [Unknown]
  - Nausea [Unknown]
  - Dyspepsia [Unknown]
  - Malaise [Unknown]
  - Migraine [Unknown]

NARRATIVE: CASE EVENT DATE: 201811
